FAERS Safety Report 18050464 (Version 1)
Quarter: 2020Q3

REPORT INFORMATION
  Report Type: Spontaneous
  Country: US (occurrence: US)
  Receive Date: 20200721
  Receipt Date: 20200721
  Transmission Date: 20201103
  Serious: Yes (Disabling, Other)
  Sender: FDA-Public Use
  Company Number: US-PURDUE-USA-2020-0157983

PATIENT
  Age: 27 Year
  Sex: Male
  Weight: 107.94 kg

DRUGS (7)
  1. HYDROMORPHONE TABLETS [Suspect]
     Active Substance: HYDROMORPHONE
     Indication: BREAKTHROUGH PAIN
     Dosage: 1 TABLET, EVERY 2 TO 3 HRS
     Route: 048
  2. OXYCODONE HCL CR TABLETS (SIMILAR TO NDA 22?272) [Suspect]
     Active Substance: OXYCODONE HYDROCHLORIDE
     Indication: PAIN
     Dosage: 2 TABLETS EVERY MORNING
     Route: 048
     Dates: start: 2011
  3. OXYCODONE HCL CR TABLETS (SIMILAR TO NDA 22?272) [Suspect]
     Active Substance: OXYCODONE HYDROCHLORIDE
     Dosage: 3 TABLETS. THREE TIMES A DAY
     Route: 048
     Dates: start: 2011
  4. HEROIN [Suspect]
     Active Substance: DIAMORPHINE
     Indication: PRODUCT USED FOR UNKNOWN INDICATION
     Dosage: UNK
     Route: 065
  5. OXYCODONE HCL CR TABLETS (SIMILAR TO NDA 22?272) [Suspect]
     Active Substance: OXYCODONE HYDROCHLORIDE
     Dosage: 3 TABLETS MID?DAY
     Route: 048
     Dates: start: 2011
  6. OXYCODONE HCL CR TABLETS (SIMILAR TO NDA 22?272) [Suspect]
     Active Substance: OXYCODONE HYDROCHLORIDE
     Dosage: 3 TABLETS AT MIDNIGHT
     Route: 048
     Dates: start: 2011
  7. OXYCODONE/ ACETAMINOPHEN TABLETS [Suspect]
     Active Substance: ACETAMINOPHEN\OXYCODONE HYDROCHLORIDE
     Indication: PRODUCT USED FOR UNKNOWN INDICATION
     Dosage: 5MG?325 MG
     Route: 048

REACTIONS (7)
  - Spinal fracture [Unknown]
  - Concussion [Unknown]
  - Pelvic fracture [Unknown]
  - Product prescribing issue [Unknown]
  - Imprisonment [Unknown]
  - Drug dependence [Unknown]
  - Drug diversion [Unknown]

NARRATIVE: CASE EVENT DATE: 201110
